FAERS Safety Report 22334421 (Version 1)
Quarter: 2023Q2

REPORT INFORMATION
  Report Type: Spontaneous
  Country: US (occurrence: US)
  Receive Date: 20230517
  Receipt Date: 20230517
  Transmission Date: 20230721
  Serious: Yes (Other)
  Sender: FDA-Public Use
  Company Number: US-drreddys-SPO/USA/23/0164864

PATIENT
  Age: 21 Year

DRUGS (1)
  1. ACCUTANE [Suspect]
     Active Substance: ISOTRETINOIN
     Indication: Acne
     Dosage: RMA ISSUE DATE : 01 MARCH 2023 11:00:05 AM, 31 MARCH 2023 10:47:18 AM, 31 MARCH 2023 03:03:33 PM

REACTIONS (1)
  - Depression [Unknown]
